FAERS Safety Report 24559174 (Version 2)
Quarter: 2024Q4

REPORT INFORMATION
  Report Type: Spontaneous
  Country: PT (occurrence: PT)
  Receive Date: 20241029
  Receipt Date: 20241115
  Transmission Date: 20250115
  Serious: Yes (Other)
  Sender: AUROBINDO
  Company Number: PT-ASPEN-2024M1082281

PATIENT
  Age: 29 Year
  Sex: Female

DRUGS (5)
  1. LIDOCAINE [Suspect]
     Active Substance: LIDOCAINE
     Indication: Product used for unknown indication
     Dosage: 2 MILLILITER
     Route: 065
  2. ROPIVACAINE [Suspect]
     Active Substance: ROPIVACAINE
     Indication: Product used for unknown indication
     Dosage: 7 MILLILITER, EVERY HOUR (0.15 PERCENT)
     Route: 065
  3. ROPIVACAINE [Suspect]
     Active Substance: ROPIVACAINE
     Dosage: 8 MILLILITER, (0.2 PERCENT)
     Route: 065
  4. SUFENTANIL [Suspect]
     Active Substance: SUFENTANIL
     Indication: Product used for unknown indication
     Dosage: 10 MICROGRAM
     Route: 065
  5. SUFENTANIL [Suspect]
     Active Substance: SUFENTANIL
     Dosage: 10 MICROGRAM
     Route: 065

REACTIONS (2)
  - Horner^s syndrome [Recovered/Resolved]
  - Exposure during pregnancy [Unknown]
